FAERS Safety Report 8993036 (Version 5)
Quarter: 2013Q3

REPORT INFORMATION
  Report Type: Report from Study
  Country: JP (occurrence: JP)
  Receive Date: 20130102
  Receipt Date: 20130917
  Transmission Date: 20140515
  Serious: Yes (Hospitalization)
  Sender: FDA-Public Use
  Company Number: JP-JNJFOC-20121212297

PATIENT
  Age: 55 Year
  Sex: Male
  Weight: 71 kg

DRUGS (7)
  1. STELARA [Suspect]
     Indication: PSORIASIS
     Route: 058
     Dates: start: 20121015, end: 20121015
  2. ADRENOCORTICAL HORMONE [Suspect]
     Indication: PRODUCT USED FOR UNKNOWN INDICATION
     Route: 065
  3. ADRENOCORTICAL HORMONE [Suspect]
     Indication: PRODUCT USED FOR UNKNOWN INDICATION
     Route: 065
  4. ADRENOCORTICAL HORMONE [Suspect]
     Indication: PRODUCT USED FOR UNKNOWN INDICATION
     Route: 065
  5. OXAROL [Concomitant]
     Indication: PSORIASIS
     Route: 061
     Dates: start: 200810
  6. OXAROL [Concomitant]
     Indication: PSORIASIS
     Route: 061
     Dates: start: 200810
  7. RINDERON-V [Concomitant]
     Indication: PSORIASIS
     Route: 061
     Dates: start: 200810

REACTIONS (1)
  - Staphylococcal infection [Recovered/Resolved]
